FAERS Safety Report 8632717 (Version 2)
Quarter: 2014Q1

REPORT INFORMATION
  Report Type: Spontaneous
  Country: US (occurrence: None)
  Receive Date: 20120323
  Receipt Date: 20130305
  Transmission Date: 20141002
  Serious: Yes (Hospitalization, Other)
  Sender: FDA-Public Use
  Company Number: 163-21880-11093805

PATIENT
  Age: 80 Year
  Sex: Male

DRUGS (14)
  1. REVLIMID [Suspect]
     Indication: PLASMA CELL MYELOMA
     Route: 048
     Dates: start: 200902
  2. AMLODIPINE BESYLATE (AMLODIPINE BESYLATE) (TABLETS) [Concomitant]
  3. PLAVIX (CLOPIDOGREL SULFATE) (TABLETS) [Concomitant]
  4. NITROSTAT (GLYCERYL TRINITRATE) (TABLETS) [Concomitant]
  5. DEXAMETHASONE (DEXAMETHASONE) (TABLETS) [Concomitant]
  6. ENALAPRIL (ENALAPRIL) (TABLETS) [Concomitant]
  7. SIMVASTATIN (SIMVASTATIN) (TABLETS) [Concomitant]
  8. DOXAZOSIN (DOXAZOSIN) (TABLETS) [Concomitant]
  9. MIRTAZAPINE (MIRTAZAPINE) (TABLETS) [Concomitant]
  10. TEMAZEPAM (TEMAZEPAM) (CAPSULES) [Concomitant]
  11. ALPRAZOLAM (ALPRAZOLAM) (CAPSULES) [Concomitant]
  12. NEXIUM (ESOMEPRAZOLE) (CAPSULES) [Concomitant]
  13. POLYETHYLENE GLYCOL (MACROGOL) (POWDER) [Concomitant]
  14. ALLOPURINOL (ALLOPURINOL) (TABLETS) [Concomitant]

REACTIONS (1)
  - Myocardial infarction [None]
